FAERS Safety Report 4491707-9 (Version None)
Quarter: 2004Q4

REPORT INFORMATION
  Report Type: 
  Country: None (occurrence: None)
  Receive Date: 20041103
  Receipt Date: 20041015
  Transmission Date: 20050328
  Serious: Yes (Life-Threatening, Disabling)
  Sender: FDA-Public Use
  Company Number: US-MERCK-0410USA02414

PATIENT
  Age: 48 Year
  Sex: Female

DRUGS (28)
  1. CLARITIN [Concomitant]
     Route: 065
  2. DICYCLOMINE HYDROCHLORIDE [Concomitant]
     Route: 065
  3. AVANDIA [Concomitant]
     Route: 065
  4. CLONIDINE [Concomitant]
     Route: 065
  5. VIOXX [Suspect]
     Indication: ARTHRITIS
     Route: 048
     Dates: start: 20030401, end: 20031101
  6. SYNTHROID [Concomitant]
     Route: 065
  7. GLUCOPHAGE [Concomitant]
     Route: 065
  8. POTASSIUM CHLORIDE [Concomitant]
     Route: 065
  9. ZOCOR [Concomitant]
     Route: 048
  10. ASPIRIN [Concomitant]
     Route: 065
  11. PLAVIX [Concomitant]
     Route: 065
  12. GLYBURIDE [Concomitant]
     Route: 065
  13. ISOSORBIDE MONONITRATE ER [Concomitant]
     Route: 065
  14. VISTARIL [Concomitant]
     Route: 065
  15. ATENOLOL MSD [Concomitant]
     Route: 048
  16. DESYREL [Concomitant]
     Route: 065
  17. PROTONIX [Concomitant]
     Route: 065
  18. SOMA [Concomitant]
     Route: 065
  19. LEVSIN PB [Concomitant]
     Route: 065
  20. DARVOCET-N 100 [Concomitant]
     Route: 065
  21. COMBIVENT [Concomitant]
     Route: 065
  22. ADVAIR [Concomitant]
     Route: 065
  23. [THERAPY UNSPECIFIED] [Concomitant]
     Route: 065
  24. HYDROCORTISONE ACETATE [Concomitant]
     Route: 061
  25. PATANOL [Concomitant]
     Route: 065
  26. NASONEX [Concomitant]
     Route: 065
  27. NEURONTIN [Concomitant]
     Route: 065
  28. NITROGLYCERIN [Concomitant]
     Route: 065

REACTIONS (3)
  - ANAPHYLACTIC SHOCK [None]
  - DYSPNOEA [None]
  - SKIN IRRITATION [None]
